FAERS Safety Report 5411378-4 (Version None)
Quarter: 2007Q3

REPORT INFORMATION
  Report Type: 
  Country: None (occurrence: None)
  Receive Date: 20070810
  Receipt Date: 20070801
  Transmission Date: 20080115
  Serious: Yes (Death, Life-Threatening, Disabling, Other)
  Sender: FDA-Public Use
  Company Number: JP-ELI_LILLY_AND_COMPANY-JP200707002505

PATIENT
  Age: 67 Year
  Sex: Female
  Weight: 55 kg

DRUGS (21)
  1. PEMETREXED [Suspect]
     Indication: PLEURAL MESOTHELIOMA MALIGNANT
     Dosage: 500 MG/M2, OTHER
     Route: 042
     Dates: start: 20070213, end: 20070213
  2. PREDONINE [Concomitant]
     Indication: CRYPTOGENIC ORGANISING PNEUMONIA
     Dosage: 20 MG, DAILY (1/D)
     Route: 048
     Dates: start: 20061007, end: 20070226
  3. MUCODYNE [Concomitant]
     Indication: CRYPTOGENIC ORGANISING PNEUMONIA
     Dosage: 750 MG, DAILY (1/D)
     Route: 048
     Dates: start: 20070113, end: 20070228
  4. BISOLVON [Concomitant]
     Indication: CRYPTOGENIC ORGANISING PNEUMONIA
     Dosage: 12 MG, DAILY (1/D)
     Route: 048
     Dates: start: 20070113, end: 20070228
  5. FERO-GRADUMET [Concomitant]
     Indication: IRON DEFICIENCY ANAEMIA
     Dosage: 2 D/F, DAILY (1/D)
     Route: 048
     Dates: start: 20060805, end: 20070228
  6. LANSOPRAZOLE [Concomitant]
     Indication: GASTRITIS
     Dosage: 15 MG, DAILY (1/D)
     Route: 048
     Dates: start: 20070106, end: 20070228
  7. LENDORMIN [Concomitant]
     Indication: INSOMNIA
     Dosage: 1 D/F, DAILY (1/D)
     Route: 048
     Dates: start: 20051223, end: 20070228
  8. ASPARA-CA [Concomitant]
     Indication: OSTEOPOROSIS PROPHYLAXIS
     Dosage: 1200 MG, DAILY (1/D)
     Route: 048
     Dates: start: 20070106, end: 20070228
  9. ROCALTROL [Concomitant]
     Indication: OSTEOPOROSIS PROPHYLAXIS
     Dosage: 2 D/F, DAILY (1/D)
     Route: 048
     Dates: start: 20070106, end: 20070228
  10. CLARITHROMYCIN [Concomitant]
     Indication: PROPHYLAXIS
     Dosage: 200 MG, DAILY (1/D)
     Route: 048
     Dates: start: 20061221, end: 20070213
  11. LEVOFLOXACIN [Concomitant]
     Indication: PROPHYLAXIS
     Dosage: 3 D/F, DAILY (1/D)
     Route: 048
     Dates: start: 20070213, end: 20070227
  12. SODIUM BICARBONATE [Concomitant]
     Indication: PROPHYLAXIS
     Dosage: 1.8 G, DAILY (1/D)
     Route: 048
     Dates: start: 20070213, end: 20070223
  13. URSO 250 [Concomitant]
     Indication: PROPHYLAXIS
     Dosage: 300 MG, DAILY (1/D)
     Route: 048
     Dates: start: 20070213, end: 20070223
  14. MAGNESIUM OXIDE [Concomitant]
     Indication: PROPHYLAXIS
     Dosage: 1 G, DAILY (1/D)
     Route: 048
     Dates: start: 20070213, end: 20070223
  15. INOVAN [Concomitant]
     Indication: RENAL DISORDER
     Dosage: 3 D/F, DAILY (1/D)
     Route: 042
     Dates: start: 20070212, end: 20070216
  16. LASIX [Concomitant]
     Indication: RENAL DISORDER
     Dosage: 20 MG, DAILY (1/D)
     Route: 042
     Dates: start: 20070214, end: 20070214
  17. MANNITOL [Concomitant]
     Indication: RENAL DISORDER
     Dosage: 300 ML, DAILY (1/D)
     Route: 042
     Dates: start: 20070214, end: 20070214
  18. FOLIAMIN [Concomitant]
     Dosage: 0.5 MG, DAILY (1/D)
     Route: 065
     Dates: start: 20070202, end: 20070227
  19. METHYCOBAL [Concomitant]
     Dosage: 1 MG, DAILY (1/D)
     Route: 030
     Dates: start: 20070202, end: 20070202
  20. KYTRIL [Concomitant]
     Indication: PROPHYLAXIS
     Dosage: 3 MG, DAILY (1/D)
     Route: 042
     Dates: start: 20070213, end: 20070216
  21. DECADRON /NET/ [Concomitant]
     Indication: PROPHYLAXIS
     Dosage: 4 MG, DAILY (1/D)
     Route: 042
     Dates: start: 20070213, end: 20070216

REACTIONS (4)
  - LYMPHOCYTE COUNT DECREASED [None]
  - PNEUMONIA [None]
  - PNEUMONIA STAPHYLOCOCCAL [None]
  - URINE OUTPUT DECREASED [None]
